FAERS Safety Report 10271713 (Version 1)
Quarter: 2014Q3

REPORT INFORMATION
  Report Type: Spontaneous
  Country: US (occurrence: US)
  Receive Date: 20140701
  Receipt Date: 20140701
  Transmission Date: 20150326
  Serious: No
  Sender: FDA-Public Use
  Company Number: US-SA-2014SA029070

PATIENT
  Age: 19 Year
  Sex: Female

DRUGS (15)
  1. CEREZYME [Suspect]
     Active Substance: IMIGLUCERASE
     Indication: GAUCHER^S DISEASE
     Route: 042
     Dates: start: 2001
  2. MULTIVITAMINS [Concomitant]
     Active Substance: VITAMINS
  3. NORMAL SALINE [Concomitant]
     Active Substance: SODIUM CHLORIDE
  4. CALCIUM [Concomitant]
     Active Substance: CALCIUM
  5. WATER. [Concomitant]
     Active Substance: WATER
  6. EPIPEN [Concomitant]
     Active Substance: EPINEPHRINE
  7. CEREZYME [Suspect]
     Active Substance: IMIGLUCERASE
     Indication: THROMBOCYTOPENIA
     Route: 042
     Dates: start: 2001
  8. CEREZYME [Suspect]
     Active Substance: IMIGLUCERASE
     Indication: GAUCHER^S DISEASE
     Dosage: 3600 UNITS ALTERNATING WITH 4000 UNITS EVERY 2 WEEKS
     Route: 042
  9. DIPHENHYDRAMINE [Concomitant]
     Active Substance: DIPHENHYDRAMINE
  10. HYDROCORTISONE. [Concomitant]
     Active Substance: HYDROCORTISONE
  11. CEREZYME [Suspect]
     Active Substance: IMIGLUCERASE
     Indication: LIVER DISORDER
     Dosage: 3600 UNITS ALTERNATING WITH 4000 UNITS EVERY 2 WEEKS
     Route: 042
  12. CEREZYME [Suspect]
     Active Substance: IMIGLUCERASE
     Indication: LIVER DISORDER
     Route: 042
     Dates: start: 2001
  13. CEREZYME [Suspect]
     Active Substance: IMIGLUCERASE
     Indication: THROMBOCYTOPENIA
     Dosage: 3600 UNITS ALTERNATING WITH 4000 UNITS EVERY 2 WEEKS
     Route: 042
  14. SODIUM CHLORIDE. [Concomitant]
     Active Substance: SODIUM CHLORIDE
  15. LEXAPRO [Concomitant]
     Active Substance: ESCITALOPRAM OXALATE

REACTIONS (2)
  - Drug dose omission [Unknown]
  - Exposure during pregnancy [Unknown]

NARRATIVE: CASE EVENT DATE: 201401
